FAERS Safety Report 4421008-6 (Version None)
Quarter: 2004Q3

REPORT INFORMATION
  Report Type: 
  Country: None (occurrence: None)
  Receive Date: 20040809
  Receipt Date: 20040624
  Transmission Date: 20050211
  Serious: Yes (Hospitalization, Other)
  Sender: FDA-Public Use
  Company Number: SE-GLAXOSMITHKLINE-B0337010A

PATIENT
  Age: 63 Year
  Sex: Male

DRUGS (11)
  1. ZINACEF [Suspect]
     Indication: PNEUMONIA
     Dosage: 4.5MG PER DAY
     Route: 042
     Dates: start: 20030722, end: 20030725
  2. PRIMAXIN [Suspect]
     Indication: PNEUMONIA
     Dosage: 1.5MG PER DAY
     Route: 042
     Dates: start: 20030725, end: 20030728
  3. ENOXAPARIN SODIUM [Concomitant]
  4. CANRENOATE POTASSIUM [Concomitant]
  5. MORPHINE [Concomitant]
  6. SALBUTAMOL SULPHATE [Concomitant]
     Dosage: 5MGML PER DAY
     Route: 055
  7. IPATROPIUM BROMIDE [Concomitant]
     Route: 065
  8. FRUSEMIDE [Concomitant]
     Dosage: 10MG PER DAY
  9. BUDESONIDE [Concomitant]
     Route: 065
  10. PROPOFOL [Concomitant]
     Route: 065
  11. SUCRALFATE [Concomitant]
     Dosage: 200MGML PER DAY
     Route: 048

REACTIONS (2)
  - RENAL FAILURE [None]
  - TRANSAMINASES INCREASED [None]
